FAERS Safety Report 9925299 (Version 1)
Quarter: 2014Q1

REPORT INFORMATION
  Report Type: Spontaneous
  Country: GB (occurrence: GB)
  Receive Date: 20140226
  Receipt Date: 20140226
  Transmission Date: 20141002
  Serious: Yes (Other)
  Sender: FDA-Public Use
  Company Number: GB-EISAI INC-E2007-01541-SPO-GB

PATIENT
  Age: 17 Year
  Sex: Male
  Weight: 53.1 kg

DRUGS (3)
  1. FYCOMPA (PERAMPANEL) [Suspect]
     Indication: FRONTAL LOBE EPILEPSY
     Route: 048
     Dates: start: 201310
  2. FYCOMPA (PERAMPANEL) [Suspect]
     Dosage: REDUCED DOSE (DOSE UNKNOWN)
     Route: 048
  3. LEVETIRACETAM [Concomitant]
     Indication: PRODUCT USED FOR UNKNOWN INDICATION
     Dosage: UNKNOWN
     Route: 065

REACTIONS (5)
  - Disturbance in attention [Unknown]
  - Depressed mood [Unknown]
  - Mood altered [Recovering/Resolving]
  - Self-injurious ideation [Unknown]
  - Anger [Unknown]
